FAERS Safety Report 5146734-5 (Version None)
Quarter: 2006Q4

REPORT INFORMATION
  Report Type: 
  Country: None (occurrence: None)
  Receive Date: 20061107
  Receipt Date: 20061107
  Transmission Date: 20070319
  Serious: No
  Sender: FDA-Public Use
  Company Number: None

PATIENT

DRUGS (1)
  1. HYDROXYZINE [Suspect]

REACTIONS (6)
  - DYSGEUSIA [None]
  - DYSPHAGIA [None]
  - ERUCTATION [None]
  - GASTROINTESTINAL DISORDER [None]
  - HIATUS HERNIA [None]
  - SENSATION OF FOREIGN BODY [None]
